FAERS Safety Report 7225515-2 (Version None)
Quarter: 2011Q1

REPORT INFORMATION
  Report Type: 
  Country: None (occurrence: None)
  Receive Date: 20110113
  Receipt Date: 20101230
  Transmission Date: 20110831
  Serious: Yes (Hospitalization)
  Sender: FDA-Public Use
  Company Number: AT-NAPPMUNDI-GBR-2010-0007542

PATIENT
  Sex: Male
  Weight: 118 kg

DRUGS (29)
  1. HYDROMORPHONE HCL [Suspect]
     Dosage: 1.7 MG/ML, DAILY
     Dates: start: 20100318, end: 20100323
  2. HYDROMORPHONE HCL [Suspect]
     Dosage: 3.1 MG/ML, DAILY
     Dates: start: 20100830, end: 20101126
  3. NEXIUM [Concomitant]
     Dosage: 40 MG, UNK
     Route: 048
     Dates: start: 20060323
  4. HYDROMORPHONE HCL [Suspect]
     Dosage: 2.1 MG/ML, DAILY
     Dates: start: 20100402, end: 20100504
  5. HYDROMORPHONE HCL [Suspect]
     Dosage: 2.28 MG/ML, DAILY
     Dates: start: 20100504, end: 20100601
  6. HYDROMORPHONE HCL [Suspect]
     Dosage: 2.57 MG/ML, DAILY
     Dates: start: 20100601, end: 20100701
  7. HYDROMORPHONE HCL [Suspect]
     Dosage: 2.85 MG/ML, DAILY
     Dates: start: 20100701, end: 20100830
  8. BERODUAL [Concomitant]
     Indication: CHRONIC OBSTRUCTIVE PULMONARY DISEASE
     Dosage: UNK, PRN
     Route: 055
     Dates: start: 20100322
  9. THEOPHYLLINE [Concomitant]
     Indication: CHRONIC OBSTRUCTIVE PULMONARY DISEASE
     Dosage: 400 MG, DAILY
     Route: 048
     Dates: start: 20100322
  10. K CL TAB [Concomitant]
     Indication: HYPOKALAEMIA
     Dosage: 1 TABLET, DAILY
     Route: 048
     Dates: start: 20100416
  11. HYDROMORPHONE HCL [Suspect]
     Indication: PAIN
     Dosage: 0.85 MG/ML, DAILY
     Route: 037
     Dates: start: 20100316, end: 20100318
  12. CLONIDINE [Suspect]
     Indication: PAIN
     Dosage: 171 MCG, DAILY
     Route: 037
     Dates: start: 20091222
  13. PASSEDAN-NERVENTROPFEN [Concomitant]
     Indication: AUTONOMIC NERVOUS SYSTEM IMBALANCE
     Dosage: 20 DROP, DAILY
     Route: 048
     Dates: start: 20100406
  14. ZOFRAN [Concomitant]
     Indication: NAUSEA
     Dosage: UNK
     Dates: start: 20100315
  15. HALCION [Concomitant]
     Indication: SLEEP DISORDER
     Dosage: 0.25 MG, UNK
     Route: 048
     Dates: start: 20080813
  16. HYDROMORPHONE HCL [Suspect]
     Dosage: 3.4 MG/ML, DAILY
     Dates: start: 20101126
  17. HYDAL 2,6 MG KAPSELN [Suspect]
     Indication: PAIN
     Dosage: 2.6 MG, PRN
     Route: 048
     Dates: start: 20100315, end: 20100322
  18. VENDAL                             /00036303/ [Concomitant]
     Indication: PAIN
     Dosage: 40 MG, UNK
     Route: 048
  19. DOMINAL                            /00018902/ [Concomitant]
     Indication: SLEEP DISORDER
     Dosage: 80 MG, DAILY
     Route: 048
     Dates: start: 20100315
  20. HYDAL 2,6 MG KAPSELN [Suspect]
     Dosage: 5.2 MG, PRN
     Route: 048
     Dates: start: 20100322
  21. NOVALGIN                           /00169801/ [Concomitant]
     Indication: PAIN
     Dosage: 40 DROP, QID
     Route: 048
     Dates: start: 20021120
  22. SYMBICORT FORTE [Concomitant]
     Indication: CHRONIC OBSTRUCTIVE PULMONARY DISEASE
     Dosage: UNK, BID
     Route: 055
     Dates: start: 20100322
  23. LASIX [Concomitant]
     Indication: OEDEMA
     Dosage: UNK
     Dates: start: 20100315
  24. PROFENID [Concomitant]
     Indication: PAIN
     Dosage: 100 MG, TID
     Route: 048
     Dates: start: 20100610, end: 20100618
  25. HYDROMORPHONE HCL [Suspect]
     Dosage: 2.57 MG/ML, DAILY
     Dates: start: 20100323, end: 20100402
  26. PREGABALIN [Concomitant]
     Dosage: 150 MG, BID
     Route: 048
     Dates: start: 20080813
  27. PROFENID [Concomitant]
     Dosage: UNK
     Route: 048
     Dates: start: 20100618
  28. FORLAX [Concomitant]
     Indication: CONSTIPATION PROPHYLAXIS
     Dosage: 1 DF, PRN
     Route: 048
     Dates: start: 20100317
  29. SPIRIVA [Concomitant]
     Indication: CHRONIC OBSTRUCTIVE PULMONARY DISEASE
     Dosage: 0.18 MG, DAILY
     Route: 055
     Dates: start: 20100322

REACTIONS (9)
  - PAROTID ABSCESS [None]
  - HYPOKALAEMIA [None]
  - HYPERTONIA [None]
  - VERTIGO [None]
  - INFLAMMATORY MARKER INCREASED [None]
  - NAUSEA [None]
  - RELAPSING FEVER [None]
  - VISION BLURRED [None]
  - INADEQUATE ANALGESIA [None]
